FAERS Safety Report 21692522 (Version 1)
Quarter: 2022Q4

REPORT INFORMATION
  Report Type: Spontaneous
  Country: US (occurrence: US)
  Receive Date: 20221207
  Receipt Date: 20221207
  Transmission Date: 20230112
  Serious: Yes (Hospitalization, Other)
  Sender: FDA-Public Use
  Company Number: US-AMGEN-USASP2022206625

PATIENT
  Age: 69 Year
  Sex: Male

DRUGS (1)
  1. DARBEPOETIN ALFA [Suspect]
     Active Substance: DARBEPOETIN ALFA
     Indication: Anaemia
     Dosage: UNK
     Route: 065

REACTIONS (7)
  - Hip fracture [Unknown]
  - Pancytopenia [Unknown]
  - Anaemia [Unknown]
  - Hyperzincaemia [Recovered/Resolved]
  - Copper deficiency [Recovered/Resolved]
  - Drug resistance [Unknown]
  - Drug ineffective [Unknown]
